FAERS Safety Report 10596229 (Version 1)
Quarter: 2014Q4

REPORT INFORMATION
  Report Type: Spontaneous
  Country: CL (occurrence: CL)
  Receive Date: 20141120
  Receipt Date: 20141120
  Transmission Date: 20150529
  Serious: Yes (Life-Threatening, Hospitalization, Other)
  Sender: FDA-Public Use
  Company Number: CL-GLAXOSMITHKLINE-CL2014GSK023194

PATIENT
  Age: 8 Year
  Sex: Female

DRUGS (2)
  1. LAMICTAL [Suspect]
     Active Substance: LAMOTRIGINE
     Indication: EPILEPSY
     Dosage: 12.5 MG, QD
     Route: 048
     Dates: start: 20141009, end: 201410
  2. LAMICTAL [Suspect]
     Active Substance: LAMOTRIGINE
     Dosage: 25 MG, QD
     Dates: start: 20141023, end: 201410

REACTIONS (6)
  - Stevens-Johnson syndrome [Recovering/Resolving]
  - Rash [Unknown]
  - Pancreatitis [Not Recovered/Not Resolved]
  - Conjunctivitis [Unknown]
  - Mucous membrane disorder [Recovering/Resolving]
  - Skin lesion [Recovering/Resolving]

NARRATIVE: CASE EVENT DATE: 20141025
